FAERS Safety Report 13142996 (Version 1)
Quarter: 2017Q1

REPORT INFORMATION
  Report Type: Spontaneous
  Country: US (occurrence: US)
  Receive Date: 20170123
  Receipt Date: 20170123
  Transmission Date: 20170428
  Serious: No
  Sender: FDA-Public Use
  Company Number: None

PATIENT
  Age: 68 Year
  Sex: Male
  Weight: 90.8 kg

DRUGS (1)
  1. AFINITOR [Suspect]
     Active Substance: EVEROLIMUS
     Indication: NEUROENDOCRINE TUMOUR
     Dosage: 10 MG DAILY EVERY 28 DAYS PO
     Route: 048
     Dates: start: 20160621

REACTIONS (4)
  - Cough [None]
  - Musculoskeletal pain [None]
  - Pain in extremity [None]
  - Back pain [None]
